FAERS Safety Report 11422894 (Version 3)
Quarter: 2015Q4

REPORT INFORMATION
  Report Type: Spontaneous
  Country: US (occurrence: US)
  Receive Date: 20150827
  Receipt Date: 20151210
  Transmission Date: 20160304
  Serious: Yes (Death, Hospitalization, Other)
  Sender: FDA-Public Use
  Company Number: US-009507513-1508USA011726

PATIENT
  Sex: Female
  Weight: 85 kg

DRUGS (1)
  1. JANUVIA [Suspect]
     Active Substance: SITAGLIPTIN PHOSPHATE
     Indication: TYPE 2 DIABETES MELLITUS
     Dosage: 100 MG, QD
     Route: 048
     Dates: start: 20111213, end: 20130408

REACTIONS (43)
  - Abdominal panniculectomy [Unknown]
  - Metastases to liver [Unknown]
  - Sepsis [Unknown]
  - Pancreatitis acute [Recovered/Resolved]
  - Hyperglycaemia [Unknown]
  - Diverticulitis [Unknown]
  - Essential hypertension [Unknown]
  - Rosacea [Unknown]
  - Road traffic accident [Unknown]
  - Abdominal injury [Unknown]
  - Joint injury [Unknown]
  - Contusion [Unknown]
  - Drug hypersensitivity [Unknown]
  - Chest pain [Unknown]
  - Metastases to abdominal cavity [Unknown]
  - Melaena [Unknown]
  - Acute hepatic failure [Unknown]
  - Gastrooesophageal reflux disease [Unknown]
  - Blood glucose decreased [Unknown]
  - Pleural effusion [Unknown]
  - Diabetic dyslipidaemia [Unknown]
  - Cholelithiasis [Unknown]
  - Metastases to lymph nodes [Unknown]
  - Acute kidney injury [Unknown]
  - Pulmonary embolism [Unknown]
  - Hyperlipidaemia [Unknown]
  - Oedema [Unknown]
  - Death [Fatal]
  - Upper gastrointestinal haemorrhage [Unknown]
  - Duodenal ulcer [Unknown]
  - Proteinuria [Unknown]
  - Lung disorder [Unknown]
  - Hepatic steatosis [Unknown]
  - Pancreatic carcinoma metastatic [Unknown]
  - Hepatic lesion [Unknown]
  - Anxiety [Unknown]
  - Thrombocytopenia [Unknown]
  - Lung infiltration [Unknown]
  - Anaemia [Unknown]
  - Cholangitis [Unknown]
  - Tuberculin test positive [Unknown]
  - Venous thrombosis [Not Recovered/Not Resolved]
  - Deep vein thrombosis [Unknown]

NARRATIVE: CASE EVENT DATE: 20130110
